FAERS Safety Report 6238622-8 (Version None)
Quarter: 2009Q2

REPORT INFORMATION
  Report Type: 
  Country: None (occurrence: None)
  Receive Date: 20090622
  Receipt Date: 20090610
  Transmission Date: 20091009
  Serious: Yes (Other)
  Sender: FDA-Public Use
  Company Number: US-PFIZER INC-2009226225

PATIENT

DRUGS (1)
  1. ZYVOX [Suspect]
     Dates: start: 20090101, end: 20090101

REACTIONS (1)
  - BLOOD POTASSIUM INCREASED [None]
